FAERS Safety Report 6100350-7 (Version None)
Quarter: 2009Q1

REPORT INFORMATION
  Report Type: 
  Country: None (occurrence: None)
  Receive Date: 20090303
  Receipt Date: 20090220
  Transmission Date: 20090719
  Serious: Yes (Hospitalization, Disabling, Other)
  Sender: FDA-Public Use
  Company Number: AU-ELI_LILLY_AND_COMPANY-AU200812003175

PATIENT
  Sex: Female

DRUGS (5)
  1. CYMBALTA [Suspect]
     Indication: FIBROMYALGIA
     Dosage: 30 MG ONCE
     Dates: start: 20080710, end: 20080710
  2. CYMBALTA [Suspect]
     Dosage: 30 MG, ONCE
     Route: 065
     Dates: start: 20080724, end: 20080724
  3. PREGABALIN [Concomitant]
     Indication: FIBROMYALGIA
     Dosage: 300 MG, DAILY (1/D)
     Route: 065
     Dates: start: 20070924
  4. ENDEP [Concomitant]
     Indication: FIBROMYALGIA
     Dosage: 5 MG, UNKNOWN
     Route: 065
     Dates: start: 20060101, end: 20080710
  5. NORSPAN [Concomitant]
     Indication: FIBROMYALGIA
     Dosage: 10 UG, UNKNOWN
     Route: 065
     Dates: start: 20071214

REACTIONS (10)
  - ABASIA [None]
  - AGITATION [None]
  - ASTHENIA [None]
  - CONVERSION DISORDER [None]
  - FALL [None]
  - GAIT DISTURBANCE [None]
  - MALAISE [None]
  - MUSCLE SPASMS [None]
  - PAIN [None]
  - TREMOR [None]
